FAERS Safety Report 14346576 (Version 1)
Quarter: 2018Q1

REPORT INFORMATION
  Report Type: Spontaneous
  Country: SE (occurrence: SE)
  Receive Date: 20180103
  Receipt Date: 20180103
  Transmission Date: 20180509
  Serious: Yes (Death, Other)
  Sender: FDA-Public Use
  Company Number: SE-MYLANLABS-2017M1083901

PATIENT
  Age: 27 Year
  Sex: Male

DRUGS (9)
  1. CODEINE [Suspect]
     Active Substance: CODEINE
     Indication: PRODUCT USED FOR UNKNOWN INDICATION
     Route: 065
  2. FLUNITRAZEPAM [Suspect]
     Active Substance: FLUNITRAZEPAM
     Indication: PRODUCT USED FOR UNKNOWN INDICATION
     Route: 065
  3. GAMMA-HYDROXYBUTYRATE [Suspect]
     Active Substance: 4-HYDROXYBUTANOIC ACID
     Indication: PRODUCT USED FOR UNKNOWN INDICATION
  4. ALCOHOL. [Interacting]
     Active Substance: ALCOHOL
     Indication: ALCOHOL USE
  5. AMFETAMINE [Suspect]
     Active Substance: AMPHETAMINE
     Indication: SUBSTANCE ABUSE
     Route: 065
  6. OXYBATE SODIUM [Suspect]
     Active Substance: SODIUM OXYBATE
     Indication: SUBSTANCE ABUSE
     Route: 065
  7. MORPHINE [Suspect]
     Active Substance: MORPHINE
     Indication: PRODUCT USED FOR UNKNOWN INDICATION
     Route: 065
  8. TETRAHYDROCANNABINOL [Suspect]
     Active Substance: DRONABINOL
     Indication: DRUG ABUSE
  9. DIAMORPHINE [Suspect]
     Active Substance: DIAMORPHINE
     Indication: SUBSTANCE ABUSE
     Route: 065

REACTIONS (5)
  - Overdose [Fatal]
  - Toxicity to various agents [Unknown]
  - Potentiating drug interaction [Unknown]
  - Accidental poisoning [Fatal]
  - Drug abuse [Unknown]
